FAERS Safety Report 19804991 (Version 1)
Quarter: 2021Q3

REPORT INFORMATION
  Report Type: Spontaneous
  Country: FR (occurrence: FR)
  Receive Date: 20210908
  Receipt Date: 20210908
  Transmission Date: 20211014
  Serious: Yes (Death)
  Sender: FDA-Public Use
  Company Number: FR-MYLANLABS-2021M1059328

PATIENT
  Age: 83 Year
  Sex: Female

DRUGS (10)
  1. CORDARONE [Suspect]
     Active Substance: AMIODARONE HYDROCHLORIDE
     Indication: ATRIAL FIBRILLATION
     Dosage: 200 MILLIGRAM, QD
     Route: 048
     Dates: end: 20210305
  2. ATORVASTATIN [Suspect]
     Active Substance: ATORVASTATIN
     Indication: DYSLIPIDAEMIA
     Dosage: 10 MILLIGRAM, QD
     Route: 048
  3. FLUOROURACIL. [Suspect]
     Active Substance: FLUOROURACIL
     Indication: ADENOCARCINOMA OF COLON
     Dosage: 2 GRAM, CYCLE
     Route: 042
     Dates: start: 20210305, end: 20210305
  4. METHYLPREDNISOLONE. [Suspect]
     Active Substance: METHYLPREDNISOLONE
     Indication: CHEMOTHERAPY SIDE EFFECT PROPHYLAXIS
     Dosage: 80 MILLIGRAM, CYCLE
     Route: 042
     Dates: start: 20210305, end: 20210305
  5. ZOPICLONE [Suspect]
     Active Substance: ZOPICLONE
     Indication: SLEEP DISORDER
     Dosage: UNK
     Route: 048
  6. ONDANSETRON [Suspect]
     Active Substance: ONDANSETRON
     Indication: CHEMOTHERAPY SIDE EFFECT PROPHYLAXIS
     Dosage: 8 MILLIGRAM, CYCLE
     Route: 042
     Dates: start: 20210305, end: 20210305
  7. OXALIPLATIN. [Suspect]
     Active Substance: OXALIPLATIN
     Indication: ADENOCARCINOMA OF COLON
     Dosage: 120 MILLIGRAM, CYCLE
     Route: 042
     Dates: start: 20210305, end: 20210305
  8. CALCIUM FOLINATE [Suspect]
     Active Substance: LEUCOVORIN CALCIUM
     Indication: ADENOCARCINOMA OF COLON
     Dosage: 670 MILLIGRAM, CYCLE
     Route: 042
     Dates: start: 20210305, end: 20210305
  9. PRADAXA [Suspect]
     Active Substance: DABIGATRAN ETEXILATE MESYLATE
     Indication: ATRIAL FIBRILLATION
     Dosage: 220 MILLIGRAM, QD
     Route: 048
  10. EXFORGE [Suspect]
     Active Substance: AMLODIPINE BESYLATE\VALSARTAN
     Indication: HYPERTENSION
     Dosage: 1 DOSAGE FORM, QD
     Route: 048

REACTIONS (1)
  - Interstitial lung disease [Fatal]

NARRATIVE: CASE EVENT DATE: 20210305
